FAERS Safety Report 11189945 (Version 3)
Quarter: 2015Q3

REPORT INFORMATION
  Report Type: Spontaneous
  Country: RU (occurrence: RU)
  Receive Date: 20150615
  Receipt Date: 20150814
  Transmission Date: 20151125
  Serious: Yes (Other)
  Sender: FDA-Public Use
  Company Number: RU-ABBVIE-15P-251-1408522-00

PATIENT
  Age: 12 Year
  Sex: Female

DRUGS (2)
  1. DEPAKINE CHRONO [Suspect]
     Active Substance: VALPROATE SODIUM
     Indication: SEIZURE
     Route: 048
     Dates: start: 201505
  2. DEPAKINE CHRONO [Suspect]
     Active Substance: VALPROATE SODIUM
     Indication: EPILEPSY
     Route: 048
     Dates: start: 20141220

REACTIONS (5)
  - Product counterfeit [Unknown]
  - Stupor [Unknown]
  - Drug ineffective [Unknown]
  - Spinal deformity [Unknown]
  - Seizure [Unknown]

NARRATIVE: CASE EVENT DATE: 201505
